FAERS Safety Report 23620974 (Version 1)
Quarter: 2024Q1

REPORT INFORMATION
  Report Type: Spontaneous
  Country: GB (occurrence: GB)
  Receive Date: 20240312
  Receipt Date: 20240312
  Transmission Date: 20240410
  Serious: Yes (Other)
  Sender: FDA-Public Use
  Company Number: None

PATIENT
  Age: 63 Year
  Sex: Male
  Weight: 109 kg

DRUGS (16)
  1. RAMIPRIL [Suspect]
     Active Substance: RAMIPRIL
     Dosage: TAKE ONE DAILY
     Route: 065
     Dates: start: 20240117
  2. BUTYLSCOPOLAMINE BROMIDE [Concomitant]
     Active Substance: BUTYLSCOPOLAMINE BROMIDE
     Dosage: TAKE ONE TO TWO UPTO 4 TIMES/DAY  IF NEEDED
     Dates: start: 20231002
  3. FLUTICASONE FUROATE [Concomitant]
     Active Substance: FLUTICASONE FUROATE
     Dosage: TWO PUFFS DAILY BOTH NOSTRILS, DURATION: 126 DAYS
     Dates: start: 20231002, end: 20240205
  4. ACLIDINIUM BROMIDE [Concomitant]
     Active Substance: ACLIDINIUM BROMIDE
     Dosage: INHALE 1 DOSE TWICE DAILY
     Dates: start: 20231002
  5. PENTASA [Concomitant]
     Active Substance: MESALAMINE
     Dosage: INSERT ONE EVERY OTHER NIGHT FOR A MONTH OR TWO...
     Dates: start: 20231002
  6. AZELASTINE [Concomitant]
     Active Substance: AZELASTINE\AZELASTINE HYDROCHLORIDE
     Dosage: ONE PUFF TWICE DAILY
     Dates: start: 20240205
  7. ROSUVASTATIN [Concomitant]
     Active Substance: ROSUVASTATIN
     Dosage: TAKE ONE DAILY
     Dates: start: 20231002
  8. ALBUTEROL [Concomitant]
     Active Substance: ALBUTEROL
     Dosage: TIME INTERVAL: AS NECESSARY: INHALE 2 DOSES AS NEEDED
     Dates: start: 20231002
  9. FEXOFENADINE [Concomitant]
     Active Substance: FEXOFENADINE HYDROCHLORIDE
     Dosage: 1 TO BE TAKEN EACH NIGHT
     Dates: start: 20231002
  10. UNSPECIFIED INGREDIENT [Concomitant]
     Active Substance: UNSPECIFIED INGREDIENT
     Dosage: APPLY FREQUENTLY
     Dates: start: 20240227
  11. FUROSEMIDE [Concomitant]
     Active Substance: FUROSEMIDE
     Dosage: TAKE TWO EACH MORNING
     Dates: start: 20231002
  12. DOXYCYCLINE [Concomitant]
     Active Substance: DOXYCYCLINE
     Dosage: TWO NOW THEN ONE DAILY, DURATION: 7 DAYS
     Dates: start: 20240216, end: 20240223
  13. DAPAGLIFLOZIN [Concomitant]
     Active Substance: DAPAGLIFLOZIN
     Dosage: TAKE ONE DAILY
     Dates: start: 20231002
  14. CARBOCYSTEINE [Concomitant]
     Active Substance: CARBOCYSTEINE
     Dosage: TIME INTERVAL: 0.33333333 DAYS: TAKE TWO CAPSULESE THREE TIMES DAY
     Dates: start: 20240216
  15. LOSARTAN [Concomitant]
     Active Substance: LOSARTAN
     Dosage: TAKE ONE DAILY
     Dates: start: 20240208
  16. SYMBICORT [Concomitant]
     Active Substance: BUDESONIDE\FORMOTEROL FUMARATE DIHYDRATE
     Dosage: 2 PUFFS TWICE DAILY
     Dates: start: 20231002

REACTIONS (1)
  - Oral mucosal blistering [Recovered/Resolved]

NARRATIVE: CASE EVENT DATE: 20240206
